FAERS Safety Report 4291059-3 (Version None)
Quarter: 2004Q1

REPORT INFORMATION
  Report Type: 
  Country: None (occurrence: None)
  Receive Date: 20040209
  Receipt Date: 20040130
  Transmission Date: 20041129
  Serious: Yes (Death)
  Sender: FDA-Public Use
  Company Number: 200321595GDDC

PATIENT
  Age: 23 Year
  Sex: Female

DRUGS (5)
  1. LANTUS [Suspect]
     Indication: DIABETES MELLITUS INSULIN-DEPENDENT
     Dosage: SC
     Route: 058
     Dates: start: 20021025
  2. CITALOPRAM [Concomitant]
  3. OLANZAPINE [Concomitant]
  4. SIMVASTATIN [Concomitant]
  5. DICLOFENAC SODIUM (VOLTAROL) [Concomitant]

REACTIONS (6)
  - ABORTION INDUCED [None]
  - BLOOD GLUCOSE FLUCTUATION [None]
  - COMPLICATIONS OF MATERNAL EXPOSURE TO THERAPEUTIC DRUGS [None]
  - INTRA-UTERINE DEATH [None]
  - MATERNAL DRUGS AFFECTING FOETUS [None]
  - PREGNANCY [None]
